FAERS Safety Report 15266200 (Version 1)
Quarter: 2018Q3

REPORT INFORMATION
  Report Type: Spontaneous
  Country: ZA (occurrence: ZA)
  Receive Date: 20180810
  Receipt Date: 20180810
  Transmission Date: 20181010
  Serious: Yes (Other)
  Sender: FDA-Public Use
  Company Number: ZA-009507513-1808ZAF001633

PATIENT
  Sex: Female

DRUGS (1)
  1. IMPLANON [Suspect]
     Active Substance: ETONOGESTREL
     Indication: CONTRACEPTION
     Dosage: 1 ROD, UPPER ARM
     Route: 059
     Dates: start: 201608, end: 201704

REACTIONS (8)
  - Cerebrovascular accident [Unknown]
  - Foetal death [Unknown]
  - Deafness unilateral [Unknown]
  - Unintended pregnancy [Recovered/Resolved]
  - Gait disturbance [Unknown]
  - Malaise [Recovered/Resolved]
  - Pregnancy with implant contraceptive [Recovered/Resolved]
  - Headache [Unknown]

NARRATIVE: CASE EVENT DATE: 2016
